FAERS Safety Report 15705845 (Version 2)
Quarter: 2019Q1

REPORT INFORMATION
  Report Type: Spontaneous
  Country: TW (occurrence: TW)
  Receive Date: 20181210
  Receipt Date: 20190102
  Transmission Date: 20190417
  Serious: Yes (Other)
  Sender: FDA-Public Use
  Company Number: TW-BAYER-2018-211465

PATIENT
  Age: 75 Year
  Sex: Male

DRUGS (9)
  1. STIVARGA [Suspect]
     Active Substance: REGORAFENIB
     Indication: HEPATOCELLULAR CARCINOMA
     Dosage: 160 MG, QD, 21 DAYS OUT OF 28-DAY CYCLE
     Dates: start: 20171212
  2. STIVARGA [Suspect]
     Active Substance: REGORAFENIB
     Indication: HEPATOCELLULAR CARCINOMA
     Dosage: 80 MG DAILY
     Dates: start: 20180105, end: 20180816
  3. BARACLUDE [Concomitant]
     Active Substance: ENTECAVIR
     Indication: HEPATITIS B
     Dosage: 0.5 MG, QD
  4. NEXAVAR [Suspect]
     Active Substance: SORAFENIB
     Indication: HEPATOCELLULAR CARCINOMA
     Dosage: 400 MG, BID
     Dates: start: 20160914
  5. NEXAVAR [Suspect]
     Active Substance: SORAFENIB
     Indication: HEPATOCELLULAR CARCINOMA
     Dosage: 400 MG, BID
     Dates: start: 20170210, end: 2017
  6. STIVARGA [Suspect]
     Active Substance: REGORAFENIB
     Indication: PORTAL VEIN THROMBOSIS
     Dosage: 120 MG, QD, 28 DAYS OUT OF 28-DAY CYCLE
  7. STIVARGA [Suspect]
     Active Substance: REGORAFENIB
     Indication: HEPATOCELLULAR CARCINOMA
     Dosage: 120 MG, QD
     Route: 048
     Dates: start: 20180817
  8. NEXAVAR [Suspect]
     Active Substance: SORAFENIB
     Indication: HEPATOCELLULAR CARCINOMA
     Dosage: 400 MG, QD
  9. NEXAVAR [Suspect]
     Active Substance: SORAFENIB
     Indication: HEPATOCELLULAR CARCINOMA
     Dosage: 200 MG, QD
     Dates: start: 20161018

REACTIONS (9)
  - Hepatocellular carcinoma [None]
  - Hepatitis B DNA increased [None]
  - Abdominal pain upper [None]
  - Hepatocellular carcinoma [None]
  - Palmar-plantar erythrodysaesthesia syndrome [Recovering/Resolving]
  - Palmar-plantar erythrodysaesthesia syndrome [None]
  - Hepatocellular carcinoma [None]
  - Hypoaesthesia [None]
  - Alanine aminotransferase increased [Recovered/Resolved]

NARRATIVE: CASE EVENT DATE: 20161005
